FAERS Safety Report 8075665-6 (Version None)
Quarter: 2012Q1

REPORT INFORMATION
  Report Type: 
  Country: None (occurrence: None)
  Receive Date: 20120127
  Receipt Date: 20120126
  Transmission Date: 20120608
  Serious: Yes (Hospitalization, Other)
  Sender: FDA-Public Use
  Company Number: RU-AMGEN-RUSCT2012003920

PATIENT
  Age: 72 Year
  Sex: Male

DRUGS (8)
  1. DETRALEX [Concomitant]
     Dosage: 450 MG, BID
     Route: 048
     Dates: start: 20091130
  2. PLACEBO [Suspect]
     Indication: HYPERPARATHYROIDISM SECONDARY
     Route: 048
     Dates: start: 20110907
  3. ASPIRIN [Concomitant]
     Dosage: UNK
     Dates: start: 20091101
  4. NIMESULIDE [Concomitant]
     Dosage: 200 MG, UNK
     Route: 048
     Dates: start: 20100318
  5. CINACALCET HYDROCHLORIDE [Suspect]
     Indication: HYPERPARATHYROIDISM SECONDARY
     Route: 048
     Dates: start: 20110907
  6. AMIODARONE HCL [Concomitant]
     Dosage: 200 MG, QD
     Route: 048
     Dates: start: 20091130
  7. CIPROFLOXACIN [Concomitant]
     Dosage: UNK
     Dates: start: 20111010, end: 20111001
  8. LEVODOPA BENSERAZIDE [Concomitant]
     Dosage: 200 MG, QD
     Route: 048
     Dates: start: 20111130

REACTIONS (2)
  - PNEUMONIA [None]
  - FEMUR FRACTURE [None]
